FAERS Safety Report 16533653 (Version 1)
Quarter: 2020Q3

REPORT INFORMATION
  Report Type: Spontaneous
  Country: US (occurrence: US)
  Receive Date: 20190703
  Receipt Date: 20190703
  Transmission Date: 20201105
  Serious: No
  Sender: FDA-Public Use
  Company Number: None

PATIENT
  Age: 48 Year
  Sex: Male
  Weight: 116 kg

DRUGS (1)
  1. ERAVACYCLINE. [Suspect]
     Active Substance: ERAVACYCLINE
     Indication: INFECTION
     Route: 042
     Dates: start: 20190527, end: 20190605

REACTIONS (2)
  - Inflammation [None]
  - Peripancreatic fluid collection [None]

NARRATIVE: CASE EVENT DATE: 20190606
